FAERS Safety Report 17857581 (Version 1)
Quarter: 2020Q2

REPORT INFORMATION
  Report Type: Spontaneous
  Country: US (occurrence: US)
  Receive Date: 20200604
  Receipt Date: 20200604
  Transmission Date: 20200714
  Serious: No
  Sender: FDA-Public Use
  Company Number: US-ASTRAZENECA-2020SE69452

PATIENT
  Sex: Male

DRUGS (1)
  1. XIGDUO XR [Suspect]
     Active Substance: DAPAGLIFLOZIN PROPANEDIOL\METFORMIN HYDROCHLORIDE
     Dosage: 5MG/1000 MG DAILY
     Route: 048

REACTIONS (4)
  - Product odour abnormal [Unknown]
  - Blood glucose increased [Not Recovered/Not Resolved]
  - Product colour issue [Unknown]
  - Product dose omission [Not Recovered/Not Resolved]
